FAERS Safety Report 4709672-5 (Version None)
Quarter: 2005Q3

REPORT INFORMATION
  Report Type: 
  Country: None (occurrence: None)
  Receive Date: 20050707
  Receipt Date: 20050617
  Transmission Date: 20060218
  Serious: Yes (Hospitalization, Other)
  Sender: FDA-Public Use
  Company Number: USA040465772

PATIENT
  Age: 85 Year
  Sex: Female
  Weight: 54 kg

DRUGS (4)
  1. FORTEO [Suspect]
     Indication: OSTEOPOROSIS
     Dosage: 20 UG 1 DAY
     Dates: start: 20040101
  2. EVISTA [Suspect]
     Indication: OSTEOPOROSIS
     Dosage: 60MG/1 DAY
     Dates: start: 20031016, end: 20031120
  3. AXID [Concomitant]
  4. HYZAAR [Concomitant]

REACTIONS (11)
  - BARRETT'S OESOPHAGUS [None]
  - BRONCHIECTASIS [None]
  - DRUG DOSE OMISSION [None]
  - GASTROOESOPHAGEAL REFLUX DISEASE [None]
  - HAEMOPTYSIS [None]
  - INJECTION SITE HAEMORRHAGE [None]
  - JOINT WARMTH [None]
  - MEDICAL DEVICE COMPLICATION [None]
  - METAPLASIA [None]
  - OEDEMA PERIPHERAL [None]
  - PHARMACEUTICAL PRODUCT COMPLAINT [None]
